FAERS Safety Report 9613221 (Version 2)
Quarter: 2013Q4

REPORT INFORMATION
  Report Type: Report from Study
  Country: DE (occurrence: DE)
  Receive Date: 20131010
  Receipt Date: 20131010
  Transmission Date: 20140711
  Serious: Yes (Hospitalization)
  Sender: FDA-Public Use
  Company Number: PHHO2010DE18749

PATIENT
  Sex: 0

DRUGS (14)
  1. ALISKIREN [Suspect]
     Indication: CARDIOVASCULAR DISORDER
     Route: 048
     Dates: start: 20090219
  2. ALLOPURINOL [Suspect]
     Indication: HYPERURICAEMIA
     Dosage: 300 MG, QD
     Route: 048
     Dates: start: 19990121, end: 20100817
  3. IRBESARTAN [Suspect]
     Indication: HYPERTENSION
     Dosage: 300 MG, QD
     Route: 048
     Dates: start: 20040209
  4. BISOPROLOL [Suspect]
     Indication: HYPERTENSION
     Dosage: 5 MG, QD
     Route: 048
     Dates: start: 19890601
  5. FUROSEMIDE [Suspect]
     Indication: HYPERTENSION
     Dosage: 80 MG, QD
     Route: 048
     Dates: start: 20031110
  6. CLOPIDOGREL [Suspect]
     Dates: start: 20091221
  7. ASS [Suspect]
     Indication: CORONARY ARTERY DISEASE
     Dosage: 100 MG/DL, QD
     Route: 048
     Dates: start: 19990701
  8. NITRENDIPINE [Suspect]
     Indication: HYPERTENSION
     Dosage: 20 MG, QD
     Route: 048
     Dates: start: 20031110
  9. EZETIMIBE/SIMVASTATIN [Suspect]
     Indication: DYSLIPIDAEMIA
  10. OMEPRAZOLE [Suspect]
     Indication: DYSPEPSIA
  11. INSULIN ASPART [Concomitant]
     Indication: DIABETES MELLITUS
  12. PROTAPHANE MC [Concomitant]
     Indication: DIABETES MELLITUS
  13. FLUPIRTINE [Concomitant]
     Indication: SPINAL PAIN
  14. L-THYROXINE [Concomitant]
     Indication: THYROID OPERATION

REACTIONS (2)
  - Rash generalised [Recovered/Resolved]
  - Pruritus generalised [Recovered/Resolved]
